FAERS Safety Report 20475476 (Version 2)
Quarter: 2022Q1

REPORT INFORMATION
  Report Type: Spontaneous
  Country: US (occurrence: US)
  Receive Date: 20220215
  Receipt Date: 20220311
  Transmission Date: 20220424
  Serious: No
  Sender: FDA-Public Use
  Company Number: US-PFIZER INC-202200163636

PATIENT
  Age: 55 Year
  Sex: Female
  Weight: 88.435 kg

DRUGS (2)
  1. PRISTIQ EXTENDED-RELEASE [Suspect]
     Active Substance: DESVENLAFAXINE SUCCINATE
     Indication: Tachycardia
     Dosage: 25 MG
  2. PRISTIQ EXTENDED-RELEASE [Suspect]
     Active Substance: DESVENLAFAXINE SUCCINATE
     Indication: Anxiety
     Dosage: 50 MG, 1X/DAY
     Dates: end: 2018

REACTIONS (8)
  - Drug withdrawal syndrome [Unknown]
  - Tachycardia [Unknown]
  - Headache [Unknown]
  - Anxiety [Unknown]
  - Electric shock sensation [Unknown]
  - Dizziness [Unknown]
  - Migraine [Unknown]
  - Feeling abnormal [Unknown]

NARRATIVE: CASE EVENT DATE: 20090101
